FAERS Safety Report 6337702-6 (Version None)
Quarter: 2009Q3

REPORT INFORMATION
  Report Type: 
  Country: None (occurrence: None)
  Receive Date: 20090902
  Receipt Date: 20090831
  Transmission Date: 20100115
  Serious: Yes (Other)
  Sender: FDA-Public Use
  Company Number: US-BRISTOL-MYERS SQUIBB COMPANY-14743348

PATIENT
  Age: 21 Year
  Sex: Male

DRUGS (3)
  1. BLEOMYCIN SULFATE [Suspect]
     Indication: GERM CELL CANCER
  2. ETOPOSIDE [Suspect]
     Indication: GERM CELL CANCER
  3. CARBOPLATIN [Suspect]
     Indication: GERM CELL CANCER

REACTIONS (3)
  - LUNG DISORDER [None]
  - PANCYTOPENIA [None]
  - PULMONARY HAEMORRHAGE [None]
